FAERS Safety Report 4747539-7 (Version None)
Quarter: 2005Q3

REPORT INFORMATION
  Report Type: 
  Country: None (occurrence: None)
  Receive Date: 20050816
  Receipt Date: 20050810
  Transmission Date: 20060218
  Serious: Yes (Disabling)
  Sender: FDA-Public Use
  Company Number: TCI2005A03489

PATIENT
  Age: 76 Year
  Sex: Male

DRUGS (9)
  1. ACTOS [Suspect]
     Indication: DIABETES MELLITUS
     Dosage: 30 MG (30 MG, 1 IN 1 D) PER ORAL
     Route: 048
     Dates: start: 20050301, end: 20050701
  2. METFORMIN HYDROCHLORIDE [Concomitant]
  3. GLUCOBAY [Concomitant]
  4. EUGLUCON (GLIBENCLAMIDE) [Concomitant]
  5. FLIVAS (NAFTOPIDIL) [Concomitant]
  6. LASIX [Concomitant]
  7. KETEK [Concomitant]
  8. CEFDINIR [Concomitant]
  9. LEVOFLOXACIN [Concomitant]

REACTIONS (11)
  - ANAEMIA [None]
  - COUGH [None]
  - DYSPNOEA [None]
  - HYPOXIA [None]
  - INTERSTITIAL LUNG DISEASE [None]
  - LABORATORY TEST ABNORMAL [None]
  - MALAISE [None]
  - PYREXIA [None]
  - REFUSAL OF TREATMENT BY PATIENT [None]
  - RESPIRATORY DISORDER [None]
  - SERUM FERRITIN INCREASED [None]
